FAERS Safety Report 9945899 (Version 2)
Quarter: 2014Q1

REPORT INFORMATION
  Report Type: Report from Study
  Country: FI (occurrence: FI)
  Receive Date: 20140303
  Receipt Date: 20140303
  Transmission Date: 20141002
  Serious: Yes (Other)
  Sender: FDA-Public Use
  Company Number: PHHY2014FI017956

PATIENT
  Age: 23 Year
  Sex: Male

DRUGS (2)
  1. LEPONEX [Suspect]
     Indication: SCHIZOPHRENIA
     Dosage: UNK
     Dates: start: 201310
  2. LEPONEX [Suspect]
     Dosage: 500 MG, DAILY

REACTIONS (5)
  - Viral infection [Recovered/Resolved]
  - C-reactive protein decreased [Unknown]
  - Nasopharyngitis [Recovered/Resolved]
  - White blood cell count decreased [Recovered/Resolved]
  - Neutrophil count decreased [Recovered/Resolved]
